FAERS Safety Report 6139215-3 (Version None)
Quarter: 2009Q2

REPORT INFORMATION
  Report Type: 
  Country: None (occurrence: None)
  Receive Date: 20090401
  Receipt Date: 20090325
  Transmission Date: 20091009
  Serious: Yes (Hospitalization)
  Sender: FDA-Public Use
  Company Number: US-JNJFOC-20090306593

PATIENT
  Sex: Female
  Weight: 113.4 kg

DRUGS (11)
  1. FENTANYL TRANSDERMAL SYSTEM [Suspect]
     Route: 062
  2. FENTANYL TRANSDERMAL SYSTEM [Suspect]
     Route: 062
  3. FENTANYL TRANSDERMAL SYSTEM [Suspect]
     Indication: NECK PAIN
     Route: 062
  4. FENTANYL TRANSDERMAL SYSTEM [Suspect]
     Route: 062
  5. FENTANYL TRANSDERMAL SYSTEM [Suspect]
     Route: 062
  6. FENTANYL TRANSDERMAL SYSTEM [Suspect]
     Indication: NECK PAIN
     Route: 062
  7. PERCOCET [Concomitant]
     Indication: PAIN
     Dosage: 10/325 MG
     Route: 048
  8. SOMA [Concomitant]
     Indication: NECK PAIN
     Route: 048
  9. SKELAXIN [Concomitant]
     Indication: BREAKTHROUGH PAIN
     Dosage: 1/2 TABLET, 3-4 TIMES A DAY AS NEEDED
     Route: 048
  10. COUMADIN [Concomitant]
     Route: 048
  11. COUMADIN [Concomitant]
     Indication: PROPHYLAXIS
     Route: 048

REACTIONS (4)
  - APPLICATION SITE REACTION [None]
  - ARTHRALGIA [None]
  - SURGERY [None]
  - WRONG TECHNIQUE IN DRUG USAGE PROCESS [None]
